FAERS Safety Report 7301911-X (Version None)
Quarter: 2011Q1

REPORT INFORMATION
  Report Type: 
  Country: None (occurrence: None)
  Receive Date: 20110218
  Receipt Date: 20110211
  Transmission Date: 20110831
  Serious: Yes (Other)
  Sender: FDA-Public Use
  Company Number: FR-CELGENEUS-056-C5013-11010100

PATIENT
  Sex: Female
  Weight: 51 kg

DRUGS (8)
  1. ZELITREX [Concomitant]
     Route: 065
     Dates: start: 20110101
  2. CC-5013 [Suspect]
     Indication: MULTIPLE MYELOMA
     Route: 048
     Dates: start: 20090729
  3. OMEPRAZOLE [Concomitant]
     Route: 065
     Dates: start: 20110101
  4. ARIXTRA [Concomitant]
     Indication: THROMBOSIS PROPHYLAXIS
     Route: 058
     Dates: start: 20090729, end: 20101231
  5. DEXAMETHASONE [Suspect]
     Indication: MULTIPLE MYELOMA
     Route: 065
     Dates: start: 20090729
  6. CC-5013 [Suspect]
     Route: 048
     Dates: start: 20101217, end: 20101231
  7. DEXAMETHASONE [Suspect]
     Route: 065
     Dates: start: 20101217, end: 20101231
  8. PHENOXYMETHYL PENICILLIN [Concomitant]
     Route: 065
     Dates: start: 20110101

REACTIONS (1)
  - LUNG ADENOCARCINOMA [None]
